FAERS Safety Report 5943322-5 (Version None)
Quarter: 2008Q4

REPORT INFORMATION
  Report Type: 
  Country: None (occurrence: None)
  Receive Date: 20081106
  Receipt Date: 20081030
  Transmission Date: 20090506
  Serious: Yes (Hospitalization)
  Sender: FDA-Public Use
  Company Number: PHHY2008FR26826

PATIENT
  Sex: Female

DRUGS (4)
  1. SANDIMMUNE [Suspect]
     Dosage: 180 MG/DAY
     Route: 042
     Dates: start: 20080906, end: 20080917
  2. CELL CEPT [Concomitant]
     Dosage: 2 G
     Route: 048
     Dates: start: 20080906
  3. CELL CEPT [Concomitant]
     Dosage: UNK
     Dates: start: 20080917
  4. CORTICOID [Concomitant]
     Indication: PROPHYLAXIS AGAINST GRAFT VERSUS HOST DISEASE
     Dosage: 1 MG/KG

REACTIONS (5)
  - ACCIDENTAL OVERDOSE [None]
  - BALANCE DISORDER [None]
  - DIPLOPIA [None]
  - ENCEPHALOPATHY [None]
  - VISUAL ACUITY REDUCED [None]
